FAERS Safety Report 7462783-6 (Version None)
Quarter: 2011Q2

REPORT INFORMATION
  Report Type: 
  Country: None (occurrence: None)
  Receive Date: 20110506
  Receipt Date: 20110503
  Transmission Date: 20111010
  Serious: Yes (Disabling, Other)
  Sender: FDA-Public Use
  Company Number: US-PFIZER INC-2011095685

PATIENT
  Sex: Male
  Weight: 129 kg

DRUGS (2)
  1. LIPITOR [Suspect]
     Dosage: 80 MG, 1X/DAY
     Route: 048
  2. LIPITOR [Suspect]
     Dosage: 10 MG, 1X/DAY
     Route: 048

REACTIONS (6)
  - WEIGHT FLUCTUATION [None]
  - BLOOD ALBUMIN INCREASED [None]
  - DIABETES MELLITUS [None]
  - ARTHRALGIA [None]
  - BLOOD UREA INCREASED [None]
  - PAIN IN EXTREMITY [None]
